FAERS Safety Report 14405810 (Version 1)
Quarter: 2018Q1

REPORT INFORMATION
  Report Type: Spontaneous
  Country: US (occurrence: US)
  Receive Date: 20180118
  Receipt Date: 20180118
  Transmission Date: 20180509
  Serious: No
  Sender: FDA-Public Use
  Company Number: US-BAYER-2018-005624

PATIENT
  Age: 52 Year
  Sex: Female
  Weight: 49.43 kg

DRUGS (1)
  1. ZEGERID OTC CAPSULES [Suspect]
     Active Substance: OMEPRAZOLE\SODIUM BICARBONATE
     Dosage: 5 DF, QD
     Route: 048

REACTIONS (5)
  - Off label use [Not Recovered/Not Resolved]
  - Poor quality drug administered [Unknown]
  - Drug administration error [None]
  - Product use issue [Not Recovered/Not Resolved]
  - Product taste abnormal [Unknown]
